FAERS Safety Report 14315240 (Version 1)
Quarter: 2017Q4

REPORT INFORMATION
  Report Type: Spontaneous
  Country: PL (occurrence: PL)
  Receive Date: 20171221
  Receipt Date: 20171221
  Transmission Date: 20180321
  Serious: Yes (Other)
  Sender: FDA-Public Use
  Company Number: PL-NOVOPROD-575908

PATIENT
  Age: 37 Year
  Sex: Female

DRUGS (1)
  1. INSULATARD NPH HUMAN [Suspect]
     Active Substance: INSULIN HUMAN
     Indication: DIABETES MELLITUS
     Dosage: UNK IU (2-10 UNITS PER DAY DEPENDING ON GLYCAEMIC LEVEL)
     Route: 058
     Dates: start: 20170401, end: 20170413

REACTIONS (6)
  - Asthenia [Recovered/Resolved]
  - Pruritus [Recovered/Resolved]
  - Injection site pruritus [Recovered/Resolved]
  - Rhinorrhoea [Recovered/Resolved]
  - Throat tightness [Recovered/Resolved]
  - Nasal discomfort [Recovered/Resolved]

NARRATIVE: CASE EVENT DATE: 20170413
